FAERS Safety Report 8533552-0 (Version None)
Quarter: 2012Q3

REPORT INFORMATION
  Report Type: 
  Country: None (occurrence: None)
  Receive Date: 20120717
  Receipt Date: 20120717
  Transmission Date: 20120928
  Serious: Yes (Hospitalization)
  Sender: FDA-Public Use
  Company Number: None

PATIENT
  Age: 75 Year
  Sex: Male
  Weight: 77 kg

DRUGS (10)
  1. DUTASTERIDE [Concomitant]
  2. ASPIRIN [Suspect]
     Indication: CARDIAC DISORDER
     Dosage: 81 MG DAILY PO PRIOR TO ADMIT
     Route: 048
  3. CROMOLYN SODIUM [Concomitant]
  4. MULTI-VITAMIN [Concomitant]
  5. CARVEDILOL [Concomitant]
  6. LUTEIN [Concomitant]
  7. DIGOXIN [Concomitant]
  8. WARFARIN SODIUM [Suspect]
     Indication: ATRIAL FIBRILLATION
     Dosage: 5 MG QODAY ALT WITH 7.5 MG QOD  PO PRIOR TO ADMIT
     Route: 048
  9. GLUCOSAMINE [Concomitant]
  10. LISINOPRIL [Concomitant]

REACTIONS (1)
  - HAEMATOCHEZIA [None]
